FAERS Safety Report 6935586-6 (Version None)
Quarter: 2010Q3

REPORT INFORMATION
  Report Type: 
  Country: None (occurrence: None)
  Receive Date: 20100823
  Receipt Date: 20100816
  Transmission Date: 20110219
  Serious: No
  Sender: FDA-Public Use
  Company Number: US-BIOGENIDEC-2010BI028069

PATIENT
  Age: 55 Year
  Sex: Female

DRUGS (3)
  1. AVONEX [Suspect]
     Indication: MULTIPLE SCLEROSIS
     Route: 030
     Dates: start: 20091115
  2. AVONEX [Suspect]
     Route: 030
     Dates: start: 20030403, end: 20030801
  3. AVONEX [Suspect]
     Route: 030
     Dates: start: 20030901, end: 20061127

REACTIONS (5)
  - CHEST PAIN [None]
  - DYSPNOEA EXERTIONAL [None]
  - HEART RATE INCREASED [None]
  - NAUSEA [None]
  - OEDEMA PERIPHERAL [None]
